FAERS Safety Report 24732409 (Version 2)
Quarter: 2025Q1

REPORT INFORMATION
  Report Type: Spontaneous
  Country: JP (occurrence: JP)
  Receive Date: 20241213
  Receipt Date: 20250306
  Transmission Date: 20250408
  Serious: Yes (Hospitalization, Other)
  Sender: EMD SERONO INC
  Company Number: JP-Merck Healthcare KGaA-2024065096

PATIENT
  Age: 67 Year
  Sex: Male
  Weight: 58 kg

DRUGS (8)
  1. METGLUCO [Suspect]
     Active Substance: METFORMIN HYDROCHLORIDE
     Indication: Type 2 diabetes mellitus
  2. ROSUVASTATIN CALCIUM [Suspect]
     Active Substance: ROSUVASTATIN CALCIUM
     Indication: Product used for unknown indication
     Dosage: 5 (UNIT UNSPECIFIED)
  3. ENTRESTO [Suspect]
     Active Substance: SACUBITRIL\VALSARTAN
     Indication: Product used for unknown indication
     Dosage: 100 (UNIT UNSPECIFIED)
  4. SPIRONOLACTONE [Suspect]
     Active Substance: SPIRONOLACTONE
     Indication: Product used for unknown indication
     Dosage: 25 (UNIT UNSPECIFIED)
  5. ASPIRIN\LANSOPRAZOLE [Suspect]
     Active Substance: ASPIRIN\LANSOPRAZOLE
     Indication: Product used for unknown indication
  6. EMPAGLIFLOZIN\LINAGLIPTIN [Concomitant]
     Active Substance: EMPAGLIFLOZIN\LINAGLIPTIN
     Indication: Product used for unknown indication
  7. BISOPROLOL FUMARATE [Concomitant]
     Active Substance: BISOPROLOL FUMARATE
     Indication: Product used for unknown indication
     Dosage: 2.5 (UNIT UNSPECIFIED)
  8. PRASUGREL HYDROCHLORIDE [Concomitant]
     Active Substance: PRASUGREL HYDROCHLORIDE
     Indication: Product used for unknown indication
     Dosage: 3.75 (UNIT UNSPECIFIED)

REACTIONS (14)
  - Hypokinesia [Unknown]
  - Acute kidney injury [Unknown]
  - Salmonella bacteraemia [Unknown]
  - Rhabdomyolysis [Unknown]
  - Aspartate aminotransferase increased [Unknown]
  - Alanine aminotransferase increased [Unknown]
  - Blood potassium decreased [Unknown]
  - Blood chloride decreased [Unknown]
  - Glycosylated haemoglobin increased [Unknown]
  - PCO2 decreased [Unknown]
  - Blood bicarbonate decreased [Unknown]
  - Insulin C-peptide decreased [Unknown]
  - Urine ketone body present [Unknown]
  - Urinary occult blood positive [Unknown]

NARRATIVE: CASE EVENT DATE: 20241014
